FAERS Safety Report 5821474-5 (Version None)
Quarter: 2008Q3

REPORT INFORMATION
  Report Type: 
  Country: None (occurrence: None)
  Receive Date: 20080724
  Receipt Date: 20080716
  Transmission Date: 20090109
  Serious: Yes (Other)
  Sender: FDA-Public Use
  Company Number: B0529484A

PATIENT
  Age: 12 Day
  Sex: Male
  Weight: 1.57 kg

DRUGS (7)
  1. CEFTAZIDIME [Suspect]
     Indication: DRUG USE FOR UNKNOWN INDICATION
     Dosage: 80MG PER DAY
     Route: 042
     Dates: start: 20080627, end: 20080630
  2. VITAMIN K1 [Concomitant]
  3. CAFFEINE CITRATE [Concomitant]
  4. AMOXICILLIN [Concomitant]
  5. GENTAMICIN [Concomitant]
  6. FLOXACILLIN SODIUM [Concomitant]
  7. VANCOMYCIN HCL [Concomitant]

REACTIONS (1)
  - HAEMOLYSIS NEONATAL [None]
